FAERS Safety Report 7587603-0 (Version None)
Quarter: 2011Q3

REPORT INFORMATION
  Report Type: 
  Country: None (occurrence: None)
  Receive Date: 20110704
  Receipt Date: 20110622
  Transmission Date: 20111222
  Serious: Yes (Hospitalization)
  Sender: FDA-Public Use
  Company Number: PHHY2011AR55962

PATIENT
  Sex: Male

DRUGS (6)
  1. METFORMIN HCL [Concomitant]
  2. ENALAPRIL MALEATE [Concomitant]
  3. SPIRONOLACTONE [Concomitant]
  4. STALEVO 100 [Suspect]
     Indication: PARKINSON'S DISEASE
     Dosage: 50 MG FOUR TABLETS DAILY
     Route: 048
     Dates: start: 20110301
  5. FUROSEMIDE [Concomitant]
  6. STALEVO 100 [Suspect]
     Dosage: 100 MG FOUR TABLETS DAILY
     Route: 048

REACTIONS (3)
  - PULMONARY OEDEMA [None]
  - CARDIAC FAILURE [None]
  - DYSPNOEA [None]
